FAERS Safety Report 13779966 (Version 1)
Quarter: 2017Q3

REPORT INFORMATION
  Report Type: Spontaneous
  Country: IT (occurrence: IT)
  Receive Date: 20170723
  Receipt Date: 20170723
  Transmission Date: 20171127
  Serious: Yes (Hospitalization)
  Sender: FDA-Public Use
  Company Number: IT-ACELLA PHARMACEUTICALS, LLC-2023652

PATIENT
  Age: 27 Year
  Sex: Male

DRUGS (6)
  1. METHYLPHENIDATE. [Suspect]
     Active Substance: METHYLPHENIDATE
     Route: 065
  2. DYPHYLLINE GG [Suspect]
     Active Substance: DYPHYLLINE\GUAIFENESIN
     Route: 065
  3. PHENCYCLIDINE [Suspect]
     Active Substance: PHENCYCLIDINE
     Route: 065
  4. BROMPHENIRAMINE MAL, PSEUDOEPHEDRINE HCL, AND DEXTROMETHORPHAN HBR [Suspect]
     Active Substance: BROMPHENIRAMINE MALEATE\DEXTROMETHORPHAN HYDROBROMIDE\PSEUDOEPHEDRINE HYDROCHLORIDE
     Indication: PRODUCT USED FOR UNKNOWN INDICATION
     Route: 065
  5. METHOXAMINE [Suspect]
     Active Substance: METHOXAMINE
     Route: 065
  6. KETAMINE HYDROCHLORIDE. [Suspect]
     Active Substance: KETAMINE HYDROCHLORIDE
     Route: 065

REACTIONS (1)
  - Substance-induced psychotic disorder [Unknown]
